FAERS Safety Report 23889744 (Version 1)
Quarter: 2024Q2

REPORT INFORMATION
  Report Type: Spontaneous
  Country: JP (occurrence: JP)
  Receive Date: 20240523
  Receipt Date: 20240523
  Transmission Date: 20240715
  Serious: Yes (Other)
  Sender: FDA-Public Use
  Company Number: JP-MALLINCKRODT-MNK202403357

PATIENT
  Age: 63 Year
  Sex: Male

DRUGS (4)
  1. NITRIC OXIDE [Suspect]
     Active Substance: NITRIC OXIDE
     Indication: Pulmonary hypertension
     Dosage: 20 PPM
     Route: 055
  2. NITRIC OXIDE [Suspect]
     Active Substance: NITRIC OXIDE
     Dosage: 10 PPM(GRADUAL WEANING)
     Route: 055
  3. NITRIC OXIDE [Suspect]
     Active Substance: NITRIC OXIDE
     Dosage: 10 PPM(READMINISTERED)
     Route: 055
  4. NITRIC OXIDE [Suspect]
     Active Substance: NITRIC OXIDE
     Dosage: 20 PPM(INCREASED)
     Route: 055

REACTIONS (1)
  - Cardiac failure [Unknown]
